FAERS Safety Report 8219903-5 (Version None)
Quarter: 2012Q1

REPORT INFORMATION
  Report Type: 
  Country: None (occurrence: None)
  Receive Date: 20120319
  Receipt Date: 20120316
  Transmission Date: 20120608
  Serious: Yes (Death, Hospitalization)
  Sender: FDA-Public Use
  Company Number: GB-GENZYME-CLOF-1001905

PATIENT
  Sex: Female
  Weight: 57 kg

DRUGS (15)
  1. EVOLTRA [Suspect]
     Dosage: 30 MG, QDX5 (CYCLE 2)
     Route: 042
     Dates: start: 20070903, end: 20070907
  2. ADCAL-D3 [Concomitant]
     Indication: PRODUCT USED FOR UNKNOWN INDICATION
     Dosage: 2 DF, BID
     Route: 048
     Dates: end: 20071011
  3. ACYCLOVIR [Concomitant]
     Indication: PROPHYLAXIS
     Dosage: 400 MG, TID
     Route: 048
     Dates: end: 20071011
  4. CIPROFLOXACIN [Concomitant]
     Indication: PROPHYLAXIS
     Dosage: 500 MG, BID
     Route: 048
     Dates: end: 20070910
  5. ORAMORPH SR [Concomitant]
     Indication: PAIN
     Dosage: 30 MG, UNK
     Route: 048
     Dates: end: 20071011
  6. DOMPERIDONE [Concomitant]
     Indication: NAUSEA
     Dosage: 20 MG, QID
     Route: 048
     Dates: end: 20110912
  7. MORPHINE [Concomitant]
     Indication: PAIN
     Dosage: 130 MG, BID
     Route: 048
     Dates: end: 20071011
  8. CO-AMILOFRUSE [Concomitant]
     Indication: DIURETIC THERAPY
     Dosage: 5/40 QD
     Route: 048
     Dates: end: 20071011
  9. EVOLTRA [Suspect]
     Indication: ACUTE MYELOID LEUKAEMIA
     Dosage: 30 MG, QD (CYCLE 1)
     Route: 042
     Dates: start: 20070730, end: 20070802
  10. ACETAMINOPHEN [Concomitant]
     Indication: PAIN
     Dosage: 1 G, QID
     Route: 048
  11. PERINDOPRIL ERBUMINE [Concomitant]
     Indication: HYPERTENSION
     Dosage: 4 MG, QD
     Route: 048
     Dates: end: 20070927
  12. CALAMINE [Concomitant]
     Indication: RASH
     Dosage: 1 DF, TID
     Route: 061
  13. OMEPRAZOLE [Concomitant]
     Indication: PROPHYLAXIS
     Dosage: 40 MG, QD
     Route: 048
     Dates: end: 20071011
  14. FLUCONAZOLE [Concomitant]
     Indication: PROPHYLAXIS
     Dosage: 50 MG, QD
     Route: 048
     Dates: end: 20071011
  15. MOVIPREP [Concomitant]
     Indication: CONSTIPATION
     Dosage: 1 DF, PRN
     Route: 048
     Dates: end: 20071003

REACTIONS (6)
  - KLEBSIELLA TEST POSITIVE [None]
  - ACUTE MYELOID LEUKAEMIA [None]
  - PYREXIA [None]
  - NAUSEA [None]
  - NEUTROPENIA [None]
  - CLOSTRIDIUM TEST POSITIVE [None]
